FAERS Safety Report 19024399 (Version 1)
Quarter: 2021Q1

REPORT INFORMATION
  Report Type: Spontaneous
  Country: US (occurrence: US)
  Receive Date: 20210317
  Receipt Date: 20210317
  Transmission Date: 20210420
  Serious: No
  Sender: FDA-Public Use
  Company Number: US-ASTRAZENECA-2021A107659

PATIENT
  Sex: Male
  Weight: 73.9 kg

DRUGS (10)
  1. BRILINTA [Suspect]
     Active Substance: TICAGRELOR
     Indication: CEREBROVASCULAR ACCIDENT
     Dosage: TWO TIMES A DAY
     Route: 048
     Dates: start: 201902
  2. SAMBUCOL BLACK ELDERBERRY [Concomitant]
     Indication: IMMUNE SYSTEM DISORDER
     Dosage: DAILY
  3. FOLIC ACID. [Concomitant]
     Active Substance: FOLIC ACID
  4. FISH OIL [Concomitant]
     Active Substance: FISH OIL
     Dosage: DAILY
  5. SUPER BETA PROSTATE ADVANCE [Concomitant]
     Indication: PROSTATOMEGALY
     Dosage: DAILY
  6. METAMUCIL [Concomitant]
     Active Substance: PLANTAGO SEED
     Indication: BLOOD CHOLESTEROL ABNORMAL
     Dosage: HE TAKES 2 CAPSULES DAILY
  7. AIRBORNE [Concomitant]
     Active Substance: HERBALS\MINERALS\VITAMINS
     Indication: IMMUNE SYSTEM DISORDER
     Dosage: TAKES OCCASIONALLY
  8. BRILINTA [Suspect]
     Active Substance: TICAGRELOR
     Indication: CEREBROVASCULAR ACCIDENT
     Dosage: DOSE WAS DECREASED TO 60 MG TWICE A DAY
     Route: 048
     Dates: start: 202002
  9. ROSUVASTATIN. [Suspect]
     Active Substance: ROSUVASTATIN
     Indication: BLOOD CHOLESTEROL ABNORMAL
     Route: 048
     Dates: start: 201902
  10. LOW DOSE ASPIRIN [Concomitant]
     Active Substance: ASPIRIN
     Indication: ANTICOAGULANT THERAPY
     Dosage: DAILY

REACTIONS (1)
  - Haemorrhage [Unknown]
